FAERS Safety Report 11321798 (Version 1)
Quarter: 2015Q3

REPORT INFORMATION
  Report Type: Report from Study
  Country: FR (occurrence: FR)
  Receive Date: 20150729
  Receipt Date: 20150729
  Transmission Date: 20151125
  Serious: Yes (Hospitalization, Other)
  Sender: FDA-Public Use
  Company Number: FR-EMD SERONO-8020262

PATIENT
  Age: 33 Year
  Sex: Male

DRUGS (2)
  1. REBIF [Suspect]
     Active Substance: INTERFERON BETA-1A
     Indication: MULTIPLE SCLEROSIS
     Dates: start: 20140406, end: 201506
  2. CLINDAMYCINE                       /00166002/ [Suspect]
     Active Substance: CLINDAMYCIN HYDROCHLORIDE
     Indication: TOOTH ABSCESS
     Dosage: EVENING

REACTIONS (17)
  - Body temperature increased [Recovered/Resolved]
  - Visual impairment [Recovered/Resolved]
  - Hyperthyroidism [Recovered/Resolved]
  - Gamma-glutamyltransferase increased [Unknown]
  - Heat stroke [Recovered/Resolved]
  - Haemangioma of liver [Recovered/Resolved]
  - Fall [Recovered/Resolved]
  - Drug intolerance [Recovered/Resolved]
  - Transaminases increased [Unknown]
  - Drug hypersensitivity [Unknown]
  - Influenza like illness [Recovered/Resolved]
  - Loss of consciousness [Recovered/Resolved]
  - Tremor [Recovered/Resolved]
  - Haemangioma [Unknown]
  - Tooth abscess [Unknown]
  - Chills [Recovered/Resolved]
  - Seizure [Recovered/Resolved]

NARRATIVE: CASE EVENT DATE: 201404
